FAERS Safety Report 18812236 (Version 3)
Quarter: 2021Q1

REPORT INFORMATION
  Report Type: Spontaneous
  Country: US (occurrence: US)
  Receive Date: 20210129
  Receipt Date: 20210209
  Transmission Date: 20210419
  Serious: No
  Sender: FDA-Public Use
  Company Number: US-009507513-2101USA012625

PATIENT
  Age: 21 Year
  Sex: Female
  Weight: 111.38 kg

DRUGS (2)
  1. NEXPLANON [Suspect]
     Active Substance: ETONOGESTREL
     Dosage: 1 DOSAGE FORM (ROD)
     Route: 059
     Dates: start: 20210120
  2. NEXPLANON [Suspect]
     Active Substance: ETONOGESTREL
     Dosage: 1 DOSAGE FORM (ROD) IN NON?DOMINANT ARM
     Route: 059
     Dates: start: 20210120, end: 20210120

REACTIONS (3)
  - Complication of device insertion [Recovered/Resolved]
  - Product quality issue [Unknown]
  - No adverse event [Unknown]

NARRATIVE: CASE EVENT DATE: 20210120
